FAERS Safety Report 6682284-2 (Version None)
Quarter: 2010Q2

REPORT INFORMATION
  Report Type: 
  Country: None (occurrence: None)
  Receive Date: 20100414
  Receipt Date: 20100414
  Transmission Date: 20101027
  Serious: Yes (Other)
  Sender: FDA-Public Use
  Company Number: None

PATIENT
  Sex: Female
  Weight: 78.0187 kg

DRUGS (2)
  1. EFFEXOR XR [Suspect]
     Indication: ANXIETY
     Dosage: EFFEXOR XR 75MG 1 Q DAY PO
     Route: 048
     Dates: start: 20090201, end: 20100201
  2. AMBIEN [Suspect]
     Indication: HOT FLUSH
     Dosage: AMBIEN 10MG 1 QHS PO
     Route: 048

REACTIONS (3)
  - AMNESIA [None]
  - EDUCATIONAL PROBLEM [None]
  - LOSS OF EMPLOYMENT [None]
